FAERS Safety Report 8194457-0 (Version None)
Quarter: 2012Q1

REPORT INFORMATION
  Report Type: 
  Country: None (occurrence: None)
  Receive Date: 20120308
  Receipt Date: 20110214
  Transmission Date: 20120608
  Serious: No
  Sender: FDA-Public Use
  Company Number: US-GLAXOSMITHKLINE-A0913382A

PATIENT
  Age: 39 Year
  Sex: Male

DRUGS (1)
  1. NICORETTE [Suspect]
     Indication: EX-TOBACCO USER

REACTIONS (6)
  - ELECTROLYTE IMBALANCE [None]
  - FEELING ABNORMAL [None]
  - LYMPHADENITIS [None]
  - ORAL DISORDER [None]
  - GINGIVAL ULCERATION [None]
  - LYMPHADENOPATHY [None]
